FAERS Safety Report 5523564-3 (Version None)
Quarter: 2007Q4

REPORT INFORMATION
  Report Type: 
  Country: None (occurrence: None)
  Receive Date: 20071121
  Receipt Date: 20071106
  Transmission Date: 20080405
  Serious: Yes (Life-Threatening, Hospitalization)
  Sender: FDA-Public Use
  Company Number: JP-ROCHE-529917

PATIENT
  Age: 53 Year
  Sex: Male

DRUGS (34)
  1. PANALDINE [Suspect]
     Indication: MYOCARDIAL INFARCTION
     Route: 048
     Dates: start: 20070922, end: 20071018
  2. ASPIRIN [Suspect]
     Indication: MYOCARDIAL INFARCTION
     Route: 048
     Dates: start: 20070922, end: 20071018
  3. MEXITIL [Suspect]
     Indication: VENTRICULAR TACHYCARDIA
     Route: 048
     Dates: start: 20071003, end: 20071018
  4. OMEPRAL [Suspect]
     Indication: GASTRIC ULCER HAEMORRHAGE
     Route: 048
     Dates: start: 20070924, end: 20071009
  5. OMEPRAL [Suspect]
     Route: 048
     Dates: start: 20071010, end: 20071018
  6. CARBENIN [Suspect]
     Indication: INFECTION
     Dosage: ROUTE:INTRAVENOUS NOS
     Route: 042
     Dates: start: 20070925, end: 20071015
  7. MINOCYCLINE HCL [Suspect]
     Indication: INFECTION
     Dosage: ROUTE:INTRAVENOUS NOS
     Route: 042
     Dates: start: 20070928, end: 20071014
  8. INSULIN [Concomitant]
     Indication: DIABETES MELLITUS
     Dates: end: 20070922
  9. ZYLORIC [Concomitant]
     Dates: end: 20070922
  10. CHOLEBRINE [Concomitant]
     Route: 065
     Dates: end: 20070922
  11. PLETAL [Concomitant]
     Route: 048
     Dates: start: 20070922, end: 20070922
  12. ALLOID G [Concomitant]
     Route: 048
     Dates: start: 20070922, end: 20071011
  13. NU-LOTAN [Concomitant]
     Route: 048
     Dates: start: 20070922, end: 20070925
  14. SIGMART [Concomitant]
     Route: 048
     Dates: start: 20070922
  15. MARZULENE S [Concomitant]
     Route: 048
     Dates: start: 20070922
  16. FAMOTIDINE [Concomitant]
     Route: 048
     Dates: start: 20070922, end: 20070926
  17. LASIX [Concomitant]
     Route: 048
     Dates: start: 20070922
  18. ALDACTONE [Concomitant]
     Route: 048
     Dates: start: 20070922, end: 20070926
  19. LAC B [Concomitant]
     Route: 048
     Dates: start: 20070928, end: 20071011
  20. LAC B [Concomitant]
     Route: 048
     Dates: start: 20071012
  21. PRIMPERAN INJ [Concomitant]
     Route: 048
     Dates: start: 20071010
  22. DOPAMINE HCL [Concomitant]
     Dates: start: 20070922
  23. DOBUTAMINE HCL [Concomitant]
     Dates: start: 20070922
  24. NORADRENALINE [Concomitant]
     Dates: start: 20070922
  25. NOVO-HEPARIN [Concomitant]
     Dates: start: 20070922
  26. DIPRIVAN [Concomitant]
     Dates: start: 20070922, end: 20071009
  27. PENTCILLIN [Concomitant]
     Dates: start: 20070923, end: 20070924
  28. FOY [Concomitant]
     Dates: start: 20070925, end: 20071006
  29. ELASPOL [Concomitant]
     Dates: start: 20070929, end: 20071006
  30. HANP [Concomitant]
     Dates: start: 20071004, end: 20071008
  31. INTRALIPID 10% [Concomitant]
     Dates: start: 20071010, end: 20071015
  32. DORMICUM [Concomitant]
     Dates: start: 20071006
  33. EPOGEN [Concomitant]
     Dates: start: 20071011
  34. LIDOCAINE HYDROCHLORIDE [Concomitant]
     Dosage: DRUG NAME OLIVES K
     Dates: start: 20070926, end: 20071004

REACTIONS (3)
  - ANAEMIA [None]
  - TOXIC EPIDERMAL NECROLYSIS [None]
  - UPPER GASTROINTESTINAL HAEMORRHAGE [None]
